FAERS Safety Report 19667345 (Version 1)
Quarter: 2021Q3

REPORT INFORMATION
  Report Type: Report from Study
  Country: US (occurrence: US)
  Receive Date: 20210806
  Receipt Date: 20210806
  Transmission Date: 20211014
  Serious: Yes (Hospitalization, Other)
  Sender: FDA-Public Use
  Company Number: US-JNJFOC-20210802881

PATIENT
  Sex: Male
  Weight: 127.3 kg

DRUGS (3)
  1. ELIQUIS [Concomitant]
     Active Substance: APIXABAN
  2. UPTRAVI [Suspect]
     Active Substance: SELEXIPAG
     Indication: PULMONARY ARTERIAL HYPERTENSION
     Route: 048
  3. METOLAZONE. [Concomitant]
     Active Substance: METOLAZONE
     Indication: FLUID RETENTION

REACTIONS (8)
  - Paraesthesia [Unknown]
  - Pancreatic cyst [Unknown]
  - Dizziness [Unknown]
  - Hepatic cirrhosis [Unknown]
  - Hypotension [Unknown]
  - Fall [Unknown]
  - Right ventricular failure [Unknown]
  - Pulmonary arterial pressure increased [Unknown]
